FAERS Safety Report 9910121 (Version 1)
Quarter: 2014Q1

REPORT INFORMATION
  Report Type: Spontaneous
  Country: US (occurrence: None)
  Receive Date: 20140218
  Receipt Date: 20140218
  Transmission Date: 20141002
  Serious: Yes (Other)
  Sender: FDA-Public Use
  Company Number: None

PATIENT
  Age: 31 Year
  Sex: Female
  Weight: 63.05 kg

DRUGS (1)
  1. ADDERALL XR [Suspect]
     Indication: ATTENTION DEFICIT/HYPERACTIVITY DISORDER
     Route: 048
     Dates: start: 20140124, end: 20140205

REACTIONS (22)
  - Diarrhoea [None]
  - Dry mouth [None]
  - Headache [None]
  - Restlessness [None]
  - Nervousness [None]
  - Anxiety [None]
  - Agitation [None]
  - Decreased appetite [None]
  - Insomnia [None]
  - Depersonalisation [None]
  - Confusional state [None]
  - Mood altered [None]
  - Hostility [None]
  - Thinking abnormal [None]
  - Aggression [None]
  - Agitation [None]
  - Impulse-control disorder [None]
  - Dysarthria [None]
  - Dysarthria [None]
  - Dyskinesia [None]
  - Weight decreased [None]
  - Heart rate irregular [None]
